FAERS Safety Report 21699519 (Version 1)
Quarter: 2022Q4

REPORT INFORMATION
  Report Type: Report from Study
  Country: US (occurrence: None)
  Receive Date: 20221208
  Receipt Date: 20221208
  Transmission Date: 20230112
  Serious: Yes (Disabling, Other)
  Sender: FDA-Public Use
  Company Number: US-Merck Healthcare KGaA-9289600

PATIENT
  Sex: Female

DRUGS (13)
  1. MAVENCLAD [Suspect]
     Active Substance: CLADRIBINE
     Indication: Primary progressive multiple sclerosis
     Dosage: YEAR ONE MONTH ONE THERAPY
     Route: 048
     Dates: start: 20210604
  2. MAVENCLAD [Suspect]
     Active Substance: CLADRIBINE
     Dosage: YEAR ONE MONTH TWO THERAPY
     Route: 048
     Dates: end: 20210705
  3. MAVENCLAD [Suspect]
     Active Substance: CLADRIBINE
     Dosage: YEAR TWO THERAPY
     Route: 048
     Dates: end: 20220707
  4. RAMIPRIL [Concomitant]
     Active Substance: RAMIPRIL
     Indication: Cardiac discomfort
  5. OXYBUTYNIN [Concomitant]
     Active Substance: OXYBUTYNIN
     Indication: Bladder disorder
  6. JARDIANCE [Concomitant]
     Active Substance: EMPAGLIFLOZIN
     Indication: Diabetes mellitus
  7. TRULICITY [Concomitant]
     Active Substance: DULAGLUTIDE
     Indication: Diabetes mellitus
  8. PROZAC [Concomitant]
     Active Substance: FLUOXETINE HYDROCHLORIDE
     Indication: Depression
  9. PROZAC [Concomitant]
     Active Substance: FLUOXETINE HYDROCHLORIDE
     Indication: Anxiety
  10. BACLOFEN [Concomitant]
     Active Substance: BACLOFEN
     Indication: Joint range of motion decreased
  11. BACLOFEN [Concomitant]
     Active Substance: BACLOFEN
     Indication: Back pain
  12. MOBIC [Concomitant]
     Active Substance: MELOXICAM
     Indication: Back pain
  13. MOBIC [Concomitant]
     Active Substance: MELOXICAM
     Indication: Joint range of motion decreased

REACTIONS (14)
  - Rheumatoid arthritis [Unknown]
  - Mobility decreased [Not Recovered/Not Resolved]
  - Alopecia [Unknown]
  - Urinary tract infection [Unknown]
  - Renal pain [Unknown]
  - Bladder dysfunction [Unknown]
  - Infrequent bowel movements [Unknown]
  - Abnormal loss of weight [Unknown]
  - Muscle atrophy [Unknown]
  - Decreased appetite [Unknown]
  - Asthenia [Unknown]
  - Multiple sclerosis [Unknown]
  - Urinary retention [Unknown]
  - Off label use [Unknown]
